FAERS Safety Report 17811039 (Version 2)
Quarter: 2020Q2

REPORT INFORMATION
  Report Type: Spontaneous
  Country: CA (occurrence: CA)
  Receive Date: 20200521
  Receipt Date: 20200522
  Transmission Date: 20200714
  Serious: Yes (Disabling)
  Sender: FDA-Public Use
  Company Number: CA-DRREDDYS-USA/CAN/20/0123219

PATIENT
  Age: 67 Year
  Sex: Male

DRUGS (2)
  1. OLMETEC PLUS [Concomitant]
     Active Substance: HYDROCHLOROTHIAZIDE\OLMESARTAN MEDOXOMIL
     Indication: PRODUCT USED FOR UNKNOWN INDICATION
     Route: 048
  2. ATORVASTATIN [Suspect]
     Active Substance: ATORVASTATIN
     Indication: LIPIDS ABNORMAL
     Route: 048

REACTIONS (2)
  - Hypoaesthesia [Recovered/Resolved]
  - Product substitution issue [Recovered/Resolved]
